FAERS Safety Report 7546030-2 (Version None)
Quarter: 2011Q2

REPORT INFORMATION
  Report Type: 
  Country: None (occurrence: None)
  Receive Date: 20110607
  Receipt Date: 20110602
  Transmission Date: 20111010
  Serious: Yes (Hospitalization)
  Sender: FDA-Public Use
  Company Number: 1000020913

PATIENT
  Age: 72 Year
  Sex: Male

DRUGS (2)
  1. CITALOPRAM HYDROBROMIDE [Suspect]
     Indication: DEPRESSION
  2. TAMSULOSIN (TAMUSLOSIN) (TAMSULOSIN) [Concomitant]

REACTIONS (8)
  - IRRITABILITY [None]
  - AFFECT LABILITY [None]
  - GAIT DISTURBANCE [None]
  - DISORIENTATION [None]
  - FALL [None]
  - CEREBRAL ATROPHY [None]
  - GRAND MAL CONVULSION [None]
  - INAPPROPRIATE ANTIDIURETIC HORMONE SECRETION [None]
